FAERS Safety Report 7472605-5 (Version None)
Quarter: 2011Q2

REPORT INFORMATION
  Report Type: 
  Country: None (occurrence: None)
  Receive Date: 20110502
  Receipt Date: 20110415
  Transmission Date: 20111010
  Serious: Yes (Disabling, Other)
  Sender: FDA-Public Use
  Company Number: 2010SP064891

PATIENT
  Age: 35 Year
  Sex: Female
  Weight: 96.6162 kg

DRUGS (1)
  1. NUVARING [Suspect]
     Indication: PRODUCT USED FOR UNKNOWN INDICATION
     Dates: start: 20070402, end: 20090101

REACTIONS (22)
  - PAIN [None]
  - IMPAIRED WORK ABILITY [None]
  - HEPATIC NECROSIS [None]
  - GASTRITIS [None]
  - DIZZINESS [None]
  - ELECTROCARDIOGRAM T WAVE ABNORMAL [None]
  - ECONOMIC PROBLEM [None]
  - QUALITY OF LIFE DECREASED [None]
  - CONSTIPATION [None]
  - MULTIPLE INJURIES [None]
  - PORTAL VEIN THROMBOSIS [None]
  - LIVER SCAN ABNORMAL [None]
  - PELVIC DISCOMFORT [None]
  - DYSPNOEA [None]
  - WHITE BLOOD CELL COUNT DECREASED [None]
  - PLATELET COUNT INCREASED [None]
  - PRESYNCOPE [None]
  - PALPITATIONS [None]
  - IRON DEFICIENCY ANAEMIA [None]
  - ABDOMINAL DISCOMFORT [None]
  - LIVER FUNCTION TEST ABNORMAL [None]
  - VAGINAL HAEMORRHAGE [None]
